FAERS Safety Report 7429136-8 (Version None)
Quarter: 2011Q2

REPORT INFORMATION
  Report Type: 
  Country: None (occurrence: None)
  Receive Date: 20110421
  Receipt Date: 20110318
  Transmission Date: 20111010
  Serious: Yes (Other)
  Sender: FDA-Public Use
  Company Number: US-BAYER-201040686NA

PATIENT
  Age: 19 Year
  Sex: Female
  Weight: 77.098 kg

DRUGS (8)
  1. ALLEGRA-D 12 HOUR [Concomitant]
     Indication: MULTIPLE ALLERGIES
  2. METROGEL [Concomitant]
     Indication: URINARY TRACT INFECTION
     Route: 067
  3. YASMIN [Suspect]
     Dosage: UNK
     Dates: start: 20030101, end: 20050801
  4. YASMIN [Suspect]
     Route: 048
     Dates: start: 20021001
  5. YASMIN [Suspect]
     Dosage: UNK
     Dates: start: 20040601, end: 20060401
  6. NAPROXEN SODIUM [Concomitant]
  7. FLUCONAZOLE [Concomitant]
     Indication: URINARY TRACT INFECTION
  8. METRONIDAZOLE [Concomitant]
     Indication: URINARY TRACT INFECTION

REACTIONS (6)
  - BILIARY DYSKINESIA [None]
  - EMOTIONAL DISORDER [None]
  - MENTAL DISORDER [None]
  - CHOLECYSTECTOMY [None]
  - CHOLECYSTITIS CHRONIC [None]
  - ABDOMINAL PAIN [None]
